FAERS Safety Report 5909511-0 (Version None)
Quarter: 2008Q4

REPORT INFORMATION
  Report Type: 
  Country: None (occurrence: None)
  Receive Date: 20081006
  Receipt Date: 20080926
  Transmission Date: 20090506
  Serious: Yes (Hospitalization)
  Sender: FDA-Public Use
  Company Number: FR-ABBOTT-08P-056-0478543-00

PATIENT
  Sex: Male

DRUGS (11)
  1. DEPAKENE [Suspect]
     Indication: CONVULSION
     Route: 050
     Dates: start: 20080616, end: 20080619
  2. DEPAKENE [Suspect]
     Route: 050
     Dates: start: 20080620, end: 20080620
  3. DEPAKENE [Suspect]
     Dates: start: 20080621, end: 20080625
  4. ZOPICLONE [Concomitant]
     Indication: DRUG USE FOR UNKNOWN INDICATION
     Route: 048
  5. MIRTAZAPINE [Concomitant]
     Indication: DRUG USE FOR UNKNOWN INDICATION
     Route: 048
  6. CANDESARTAN CILEXETIL [Concomitant]
     Indication: DRUG USE FOR UNKNOWN INDICATION
     Route: 048
  7. AMIODARONE [Concomitant]
     Indication: DRUG USE FOR UNKNOWN INDICATION
  8. HYDROSALURIC-K [Concomitant]
     Indication: DRUG USE FOR UNKNOWN INDICATION
     Route: 048
  9. PENTOXIFYLLINE [Concomitant]
     Indication: DRUG USE FOR UNKNOWN INDICATION
     Route: 048
  10. PANTOPRAZOLE SODIUM [Concomitant]
     Indication: DRUG USE FOR UNKNOWN INDICATION
     Route: 048
  11. BISOPROLOL FUMARATE [Concomitant]
     Indication: DRUG USE FOR UNKNOWN INDICATION
     Route: 048

REACTIONS (5)
  - COMA [None]
  - ENCEPHALOPATHY [None]
  - HYPERAMMONAEMIA [None]
  - METABOLIC ENCEPHALOPATHY [None]
  - STATUS EPILEPTICUS [None]
